FAERS Safety Report 17950167 (Version 2)
Quarter: 2022Q3

REPORT INFORMATION
  Report Type: Report from Study
  Country: AR (occurrence: AR)
  Receive Date: 20200626
  Receipt Date: 20220626
  Transmission Date: 20221027
  Serious: Yes (Death, Hospitalization, Other)
  Sender: FDA-Public Use
  Company Number: AR-NOVARTISPH-NVSC2020AR062151

PATIENT
  Age: 67 Year
  Sex: Male
  Weight: 67 kg

DRUGS (7)
  1. SACUBITRIL\VALSARTAN [Suspect]
     Active Substance: SACUBITRIL\VALSARTAN
     Indication: Chagas^ cardiomyopathy
     Dosage: 100 MG, QD (DAILY)
     Route: 048
     Dates: start: 20191223, end: 20200301
  2. SACUBITRIL\VALSARTAN [Suspect]
     Active Substance: SACUBITRIL\VALSARTAN
     Dosage: UNK
     Route: 048
     Dates: start: 20200421
  3. SPIRONOLACTONE [Concomitant]
     Active Substance: SPIRONOLACTONE
     Indication: Cardiac failure
     Dosage: 25 MG, DAILY
     Route: 048
     Dates: start: 201812
  4. AMIODARONE [Concomitant]
     Active Substance: AMIODARONE
     Indication: Cardiac failure
     Dosage: 200 MG, DAILY
     Route: 048
     Dates: start: 201812
  5. FUROSEMIDE [Concomitant]
     Active Substance: FUROSEMIDE
     Indication: Cardiac failure
     Dosage: 40 MG, DAILY
     Route: 048
     Dates: start: 201812
  6. CARVEDILOL [Concomitant]
     Active Substance: CARVEDILOL
     Indication: Cardiac failure
     Dosage: 6.25 MG, DAILY
     Route: 048
     Dates: start: 201812
  7. ENALAPRIL [Concomitant]
     Active Substance: ENALAPRIL
     Indication: Cardiac failure
     Dosage: 5 MG, DAILY
     Route: 048
     Dates: start: 201812

REACTIONS (3)
  - Cardiac failure [Not Recovered/Not Resolved]
  - Presyncope [Recovered/Resolved]
  - Cardiac failure acute [Fatal]

NARRATIVE: CASE EVENT DATE: 20200302
